FAERS Safety Report 4296966-3 (Version None)
Quarter: 2004Q1

REPORT INFORMATION
  Report Type: 
  Country: None (occurrence: None)
  Receive Date: 20040217
  Receipt Date: 20040114
  Transmission Date: 20041129
  Serious: Yes (Hospitalization)
  Sender: FDA-Public Use
  Company Number: US-BRISTOL-MYERS SQUIBB COMPANY-12478798

PATIENT
  Age: 77 Year
  Sex: Female
  Weight: 50 kg

DRUGS (9)
  1. CYTOXAN [Suspect]
     Indication: BREAST CANCER STAGE I
     Dosage: C1: 21-SEP-2001, C2: 12-OCT-2001, C3: 02-NOV-2001
     Route: 042
     Dates: start: 20011121, end: 20011121
  2. ADRIAMYCIN PFS [Suspect]
     Dosage: C1: 21-SEP-2001, C2: 12-OCT-2001, C3: 02-NOV-2001
     Route: 042
     Dates: start: 20011121, end: 20011121
  3. ARIMIDEX [Concomitant]
     Route: 042
     Dates: start: 20020101
  4. FLORINEF [Concomitant]
  5. ANZEMET [Concomitant]
     Indication: PREMEDICATION
     Route: 042
  6. ANZEMET [Concomitant]
     Dosage: AT HOME USE POST TREATMENT
     Route: 048
  7. DECADRON [Concomitant]
     Indication: PREMEDICATION
     Route: 042
  8. COUMADIN [Concomitant]
     Indication: PROPHYLAXIS
     Route: 048
  9. ASPIRIN [Concomitant]

REACTIONS (4)
  - ASTHENIA [None]
  - AUTONOMIC NEUROPATHY [None]
  - HYPOTENSION [None]
  - NAUSEA [None]
